FAERS Safety Report 7416318-4 (Version None)
Quarter: 2011Q2

REPORT INFORMATION
  Report Type: 
  Country: None (occurrence: None)
  Receive Date: 20110414
  Receipt Date: 20110331
  Transmission Date: 20111010
  Serious: Yes (Life-Threatening, Hospitalization)
  Sender: FDA-Public Use
  Company Number: JP-CELGENEUS-087-21880-11033687

PATIENT
  Sex: Male

DRUGS (13)
  1. REVLIMID [Suspect]
     Dosage: 5 MILLIGRAM
     Route: 048
     Dates: start: 20101129, end: 20101216
  2. LOSARTAN POTASSIUM AND HYDROCHLOROTHIAZIDE [Concomitant]
     Indication: HYPERTENSION
     Route: 048
     Dates: start: 20110208, end: 20110309
  3. ANTIBIOTICS [Suspect]
     Route: 048
  4. ASPIRIN [Concomitant]
     Indication: ANGINA PECTORIS
     Dosage: 100 MILLIGRAM
     Route: 048
     Dates: start: 20110208, end: 20110209
  5. TENORMIN [Concomitant]
     Indication: HYPERTENSION
     Dosage: 50 MILLIGRAM
     Route: 048
     Dates: start: 20110208, end: 20110309
  6. ALOSITOL [Concomitant]
     Dosage: 100 MILLIGRAM
     Route: 048
     Dates: start: 20110208, end: 20110309
  7. NORVASC [Concomitant]
     Indication: HYPERTENSION
     Dosage: 5 MILLIGRAM
     Route: 048
     Dates: start: 20110208, end: 20110309
  8. MICARDIS [Concomitant]
     Indication: HYPERTENSION
     Dosage: 80 MILLIGRAM
     Route: 048
     Dates: start: 20110317, end: 20110326
  9. REVLIMID [Suspect]
     Dosage: 5 MILLIGRAM
     Route: 048
     Dates: start: 20110208, end: 20110304
  10. LASIX [Concomitant]
     Indication: HYPERTENSION
     Dosage: 20 MILLIGRAM
     Route: 048
     Dates: start: 20110208, end: 20110309
  11. ARGAMATE [Concomitant]
     Indication: HYPERTENSION
     Dosage: 25 GRAM
     Route: 048
     Dates: start: 20110208, end: 20110309
  12. OMEPRAL [Concomitant]
     Indication: PROPHYLAXIS
     Dosage: 10 MILLIGRAM
     Route: 048
     Dates: start: 20110208, end: 20110309
  13. ARTIST [Concomitant]
     Indication: HYPERTENSION
     Dosage: 20 MILLIGRAM
     Route: 048
     Dates: start: 20110317, end: 20110326

REACTIONS (5)
  - RESPIRATORY TRACT INFLAMMATION [None]
  - NEUTROPHIL COUNT DECREASED [None]
  - PLATELET COUNT DECREASED [None]
  - DRUG ERUPTION [None]
  - ENTERITIS INFECTIOUS [None]
